FAERS Safety Report 9861066 (Version 1)
Quarter: 2014Q1

REPORT INFORMATION
  Report Type: Spontaneous
  Country: GB (occurrence: None)
  Receive Date: 20140130
  Receipt Date: 20140130
  Transmission Date: 20141002
  Serious: Yes (Other)
  Sender: FDA-Public Use
  Company Number: 2014-000172

PATIENT
  Age: 53 Year
  Sex: Female
  Weight: 65 kg

DRUGS (2)
  1. DORYX [Suspect]
     Dates: start: 20140108
  2. CONJUGATD OESTROGENS EQUINE (ESTROGENS CONJUGATED)? [Concomitant]

REACTIONS (2)
  - Depression [None]
  - Hyperaesthesia [None]
